FAERS Safety Report 15244079 (Version 1)
Quarter: 2018Q3

REPORT INFORMATION
  Report Type: Spontaneous
  Country: IT (occurrence: IT)
  Receive Date: 20180806
  Receipt Date: 20180806
  Transmission Date: 20181010
  Serious: Yes (Hospitalization)
  Sender: FDA-Public Use
  Company Number: IT-MYLANLABS-2018M1058265

PATIENT
  Age: 17 Year
  Sex: Female

DRUGS (4)
  1. ABILIFY 10 MG TABLETS [Concomitant]
     Indication: CONVERSION DISORDER
     Dosage: 1 DF, QD
  2. QUETIAPINE. [Suspect]
     Active Substance: QUETIAPINE
     Indication: CONVERSION DISORDER
     Dosage: 600 MG, QD
  3. LORAZEPAM. [Concomitant]
     Active Substance: LORAZEPAM
     Indication: CONVERSION DISORDER
     Dosage: 25 GTT, QD
  4. ZOLOFT [Concomitant]
     Active Substance: SERTRALINE HYDROCHLORIDE
     Indication: CONVERSION DISORDER
     Dosage: 1 DF, QD

REACTIONS (2)
  - Mood altered [Recovered/Resolved]
  - Intentional self-injury [Recovered/Resolved]

NARRATIVE: CASE EVENT DATE: 20180415
